FAERS Safety Report 7649322-1 (Version None)
Quarter: 2011Q3

REPORT INFORMATION
  Report Type: 
  Country: None (occurrence: None)
  Receive Date: 20110726
  Receipt Date: 20110421
  Transmission Date: 20111222
  Serious: Yes (Other)
  Sender: FDA-Public Use
  Company Number: JPI-P-015193

PATIENT
  Age: 31 Year
  Sex: Female
  Weight: 104.3273 kg

DRUGS (3)
  1. MULTIPLE UNSPECIFIED MEDICATIONS [Concomitant]
  2. XYREM [Suspect]
     Indication: APNOEA
     Dosage: (2 IN 1 D), ORAL; 9 GM (4.5 GM,2 IN 1 D), ORAL
     Route: 048
     Dates: end: 20101201
  3. XYREM [Suspect]
     Indication: APNOEA
     Dosage: (2 IN 1 D), ORAL; 9 GM (4.5 GM,2 IN 1 D), ORAL
     Route: 048
     Dates: start: 20081001

REACTIONS (1)
  - DEEP VEIN THROMBOSIS [None]
